FAERS Safety Report 20024186 (Version 2)
Quarter: 2021Q4

REPORT INFORMATION
  Report Type: Spontaneous
  Country: DE (occurrence: DE)
  Receive Date: 20211102
  Receipt Date: 20211112
  Transmission Date: 20220303
  Serious: Yes (Hospitalization)
  Sender: FDA-Public Use
  Company Number: DE-002147023-NVSC2021DE166267

PATIENT
  Age: 56 Year
  Sex: Female
  Weight: 51 kg

DRUGS (12)
  1. TORSEMIDE [Suspect]
     Active Substance: TORSEMIDE
     Indication: Hepatic cirrhosis
     Dosage: 1 DOSAGE FORM, QD/ START DATE: JUN-2021
     Route: 065
  2. TORSEMIDE [Suspect]
     Active Substance: TORSEMIDE
     Indication: Liver disorder
     Dosage: 10 MG, BID (1-1-0 / 2X1 DAILY)/START DATE: JUL-2021
     Route: 065
  3. TORSEMIDE [Suspect]
     Active Substance: TORSEMIDE
     Indication: Ascites
     Dosage: 1 DF, QD (1-0-0 / 1X1 DAILY)/ START DATE: 30-JUN-2021
     Route: 065
     Dates: end: 202107
  4. TORSEMIDE [Suspect]
     Active Substance: TORSEMIDE
     Indication: Oedema
  5. SPIRONOLACTONE [Suspect]
     Active Substance: SPIRONOLACTONE
     Indication: Product used for unknown indication
     Dosage: 1 DOSAGE FORM, QD/ START DATE: JUN-2021
     Route: 065
  6. SPIRONOLACTONE [Suspect]
     Active Substance: SPIRONOLACTONE
     Indication: Liver disorder
     Dosage: 1 DF, BID(1-0-1)/START DATE: MAY-2021
     Route: 065
  7. SPIRONOLACTONE [Suspect]
     Active Substance: SPIRONOLACTONE
     Indication: Oedema
     Dosage: 1 DF, BID(1-0-1)(TAKEN FROM END OF APRIL/ BEGINNING OF MAY 2021)/START DATE:2021
     Route: 065
     Dates: end: 202107
  8. SPIRONOLACTONE [Suspect]
     Active Substance: SPIRONOLACTONE
     Indication: Hepatic cirrhosis
  9. SPIRONOLACTONE [Suspect]
     Active Substance: SPIRONOLACTONE
     Indication: Ascites
  10. LEVOTHYROXINE SODIUM\POTASSIUM IODIDE [Concomitant]
     Active Substance: LEVOTHYROXINE SODIUM\POTASSIUM IODIDE
     Indication: Hypothyroidism
     Dosage: (SPRAY) (START DATE REPORTED AS FOR SEVERAL YEARS)
  11. LEVOTHYROXINE SODIUM\POTASSIUM IODIDE [Concomitant]
     Active Substance: LEVOTHYROXINE SODIUM\POTASSIUM IODIDE
     Indication: Cyst removal
  12. ALBUTEROL [Concomitant]
     Active Substance: ALBUTEROL
     Indication: Asthma
     Dosage: (START DATE OF SALBUTAMOL SPRAY WAS REPORTED AS FOR 20 YEARS)

REACTIONS (13)
  - Oedema peripheral [Recovering/Resolving]
  - Anaemia [Unknown]
  - Pulmonary oedema [Unknown]
  - Ascites [Recovering/Resolving]
  - Rash [Not Recovered/Not Resolved]
  - Paraesthesia [Not Recovered/Not Resolved]
  - Rash erythematous [Recovering/Resolving]
  - Weight decreased [Unknown]
  - Blood pressure diastolic increased [Unknown]
  - Product use in unapproved indication [Unknown]
  - Asthenia [Recovering/Resolving]
  - Pruritus [Recovering/Resolving]
  - Fatigue [Recovering/Resolving]

NARRATIVE: CASE EVENT DATE: 20210501
